FAERS Safety Report 5113383-4 (Version None)
Quarter: 2006Q3

REPORT INFORMATION
  Report Type: 
  Country: None (occurrence: None)
  Receive Date: 20060920
  Receipt Date: 20060901
  Transmission Date: 20061208
  Serious: Yes (Other)
  Sender: FDA-Public Use
  Company Number: 229765

PATIENT
  Age: 33 Year
  Sex: Female

DRUGS (3)
  1. HERCEPTIN [Suspect]
     Indication: BREAST CANCER METASTATIC
     Dosage: 4 MG/M2, INTRAVENOUS
     Route: 042
     Dates: start: 20060719
  2. LAPATINIB(LAPATINIB DITOSYLATE) [Suspect]
     Indication: BREAST CANCER METASTATIC
     Dosage: ORAL
     Route: 048
     Dates: start: 20060719
  3. DOCETAXEL (DOCETAXEL) [Suspect]
     Indication: BREAST CANCER METASTATIC
     Dosage: 100 MG/M2, INTRAVENOUS
     Route: 042
     Dates: start: 20060719

REACTIONS (1)
  - NEUTROPENIA [None]
